FAERS Safety Report 10015766 (Version 1)
Quarter: 2014Q1

REPORT INFORMATION
  Report Type: Spontaneous
  Country: US (occurrence: US)
  Receive Date: 20140317
  Receipt Date: 20140317
  Transmission Date: 20141002
  Serious: No
  Sender: FDA-Public Use
  Company Number: US-009507513-1403USA001263

PATIENT
  Age: 59 Year
  Sex: Male

DRUGS (6)
  1. DULERA [Suspect]
     Indication: COUGH
     Dosage: 100/5 MICROGRAM, ONE PUFF TWICE DAILY
     Route: 055
     Dates: start: 20140228
  2. FORTESTA [Concomitant]
  3. CELEXA [Concomitant]
  4. WELLBUTRIN [Concomitant]
  5. LOVAZA [Concomitant]
  6. QUINAPRIL HYDROCHLORIDE [Concomitant]

REACTIONS (4)
  - Cough [Not Recovered/Not Resolved]
  - Drug dose omission [Unknown]
  - Product quality issue [Unknown]
  - Prescribed underdose [Unknown]
